FAERS Safety Report 5426499-X (Version None)
Quarter: 2007Q3

REPORT INFORMATION
  Report Type: 
  Country: None (occurrence: None)
  Receive Date: 20070731
  Receipt Date: 20070623
  Transmission Date: 20080115
  Serious: No
  Sender: FDA-Public Use
  Company Number: US200706006122

PATIENT
  Age: 58 Year
  Sex: Female

DRUGS (3)
  1. BYETTA [Suspect]
     Dosage: 10 UG EACH MORNING, SUBCUTANEOUS, 5 UG, EACH EVENING, SUBCUTANEOUS
     Route: 058
  2. EXENATIDE 10MCG PEN, DISPOSABLE DEVICE (EXENATIDE PEN (10MCG))PEN, DIS [Concomitant]
  3. EXENATIDE 5MCG PEN, DISPOSABLE DEVICE (EXENATIDE PEN (5MCG)) PEN, DISP [Concomitant]

REACTIONS (1)
  - HAEMOGLOBIN DECREASED [None]
